FAERS Safety Report 6051614-7 (Version None)
Quarter: 2009Q1

REPORT INFORMATION
  Report Type: 
  Country: None (occurrence: None)
  Receive Date: 20090126
  Receipt Date: 20090119
  Transmission Date: 20090719
  Serious: Yes (Hospitalization, Disabling)
  Sender: FDA-Public Use
  Company Number: CG-MERCK-0901USA03044

PATIENT
  Age: 36 Year
  Sex: Male

DRUGS (1)
  1. STROMECTOL [Suspect]
     Route: 048
     Dates: start: 20081031, end: 20081031

REACTIONS (8)
  - ASTHENIA [None]
  - BACK PAIN [None]
  - CHILLS [None]
  - DEPRESSED LEVEL OF CONSCIOUSNESS [None]
  - DIARRHOEA [None]
  - PRURITUS GENERALISED [None]
  - RASH PAPULAR [None]
  - URINARY INCONTINENCE [None]
